FAERS Safety Report 8855393 (Version 1)
Quarter: 2012Q4

REPORT INFORMATION
  Report Type: 
  Country: US (occurrence: US)
  Receive Date: 20121023
  Receipt Date: 20121023
  Transmission Date: 20130627
  Serious: No
  Sender: FDA-Public Use
  Company Number: US-AMGEN-USASP2012058716

PATIENT
  Age: 50 Year
  Sex: Female
  Weight: 87.98 kg

DRUGS (5)
  1. ENBREL [Suspect]
     Indication: PSORIATIC ARTHROPATHY
     Dosage: 50 UNK, qwk
     Route: 058
     Dates: start: 2005
  2. SIMPONI [Concomitant]
     Dosage: UNK
  3. LEFLUNOMIDE [Concomitant]
     Indication: PSORIATIC ARTHROPATHY
     Dosage: 10 UNK, qd
     Route: 048
     Dates: start: 20091130
  4. HYDROCHLOROTHIAZIDE [Concomitant]
     Indication: HYPERTENSION
     Dosage: 25 mg, qd
     Route: 048
  5. ATENOLOL [Concomitant]
     Indication: HYPERTENSION
     Dosage: 25 mg, qd

REACTIONS (2)
  - Blister [Recovered/Resolved]
  - Psoriasis [Recovered/Resolved]
